FAERS Safety Report 9778331 (Version 2)
Quarter: 2013Q4

REPORT INFORMATION
  Report Type: Spontaneous
  Country: GB (occurrence: GB)
  Receive Date: 20131223
  Receipt Date: 20131223
  Transmission Date: 20140711
  Serious: Yes (Hospitalization)
  Sender: FDA-Public Use
  Company Number: GB-UCBSA-102810

PATIENT
  Age: 61 Year
  Sex: Female

DRUGS (6)
  1. KEPPRA [Suspect]
     Indication: EPILEPSY
     Dosage: DOSE: 500 MG (INCORRECT TABLET). LOT NUMBER : BN103961 (250 MG) + BN103579 (500 MG)
     Route: 048
  2. KEPPRA [Suspect]
     Indication: EPILEPSY
     Dosage: DOSE: UNKNOWN
     Route: 048
  3. SIMVASTATIN [Concomitant]
     Route: 048
  4. CLOPIDOGREL [Concomitant]
     Route: 048
  5. CARBAMAZEPINE [Concomitant]
     Dosage: M/R
     Route: 048
  6. NITROFURANTOIN [Concomitant]
     Route: 048

REACTIONS (7)
  - Somnolence [Recovering/Resolving]
  - Urinary tract infection [Unknown]
  - Fall [Unknown]
  - Upper limb fracture [Unknown]
  - Pain [Unknown]
  - Overdose [Unknown]
  - Product packaging issue [Unknown]
